FAERS Safety Report 6295294-4 (Version None)
Quarter: 2009Q3

REPORT INFORMATION
  Report Type: 
  Country: None (occurrence: None)
  Receive Date: 20090803
  Receipt Date: 20090722
  Transmission Date: 20100115
  Serious: Yes (Other)
  Sender: FDA-Public Use
  Company Number: US-ELI_LILLY_AND_COMPANY-US200907005051

PATIENT
  Sex: Female

DRUGS (2)
  1. CYMBALTA [Suspect]
     Indication: DEPRESSION
     Dosage: 20 MG, DAILY (1/D)
     Dates: start: 20090714, end: 20090701
  2. CYMBALTA [Suspect]
     Dosage: 20 MG, QOD
     Dates: start: 20090701

REACTIONS (5)
  - CHROMATURIA [None]
  - HEPATITIS A [None]
  - NAUSEA [None]
  - OCULAR ICTERUS [None]
  - OFF LABEL USE [None]
